FAERS Safety Report 4805923-7 (Version None)
Quarter: 2005Q4

REPORT INFORMATION
  Report Type: 
  Country: None (occurrence: None)
  Receive Date: 20051019
  Receipt Date: 20051014
  Transmission Date: 20060501
  Serious: Yes (Hospitalization)
  Sender: FDA-Public Use
  Company Number: TCI2003A03028

PATIENT
  Age: 68 Year
  Sex: Male

DRUGS (4)
  1. LANSOPRAZOLE [Suspect]
     Indication: DUODENAL ULCER
     Dosage: 30 MG (30 MG, 1 IN 1 D) PER ORAL
     Route: 048
     Dates: start: 20020101, end: 20020604
  2. SELBEX (TEPRENONE ) [Concomitant]
  3. MAGNESIUM OXIDE (MAGNESIUM OXIDE) [Concomitant]
  4. BAYMACARD (NISOLDIPINE) [Concomitant]

REACTIONS (10)
  - ABNORMAL BEHAVIOUR [None]
  - ANGER [None]
  - CEREBRAL ATROPHY [None]
  - DRUG INEFFECTIVE [None]
  - ELECTROENCEPHALOGRAM ABNORMAL [None]
  - EXCITABILITY [None]
  - FREQUENT BOWEL MOVEMENTS [None]
  - INCOHERENT [None]
  - MENTAL DISORDER [None]
  - SCREAMING [None]
